FAERS Safety Report 4319578-1 (Version None)
Quarter: 2004Q1

REPORT INFORMATION
  Report Type: 
  Country: None (occurrence: None)
  Receive Date: 20040319
  Receipt Date: 20040315
  Transmission Date: 20041129
  Serious: Yes (Hospitalization)
  Sender: FDA-Public Use
  Company Number: FR-ROCHE-361700

PATIENT
  Age: 66 Year
  Sex: Female

DRUGS (3)
  1. SORIATANE [Suspect]
     Indication: PSORIASIS
     Route: 048
  2. PSORALEN [Suspect]
     Indication: PSORIASIS
     Route: 065
  3. NOLVADEX [Concomitant]

REACTIONS (3)
  - CARCINOMA [None]
  - NEOPLASM SKIN [None]
  - SKIN CANCER [None]
